FAERS Safety Report 6965254 (Version 3)
Quarter: 2013Q2

REPORT INFORMATION
  Report Type: Spontaneous
  Country: US (occurrence: US)
  Receive Date: 20090409
  Receipt Date: 20130409
  Transmission Date: 20140414
  Serious: Yes (Death, Hospitalization, Other)
  Sender: FDA-Public Use
  Company Number: US-BRISTOL-MYERS SQUIBB COMPANY-14580062

PATIENT
  Age: 61 Year
  Sex: Male
  Weight: 157.82 kg

DRUGS (15)
  1. AVAPRO TABS 300 MG [Suspect]
     Route: 048
     Dates: start: 20061205
  2. BYETTA [Suspect]
     Indication: TYPE 2 DIABETES MELLITUS
     Dosage: (5 MCG) (PREFILLED PEN) FROM 20FEB07-27MAR07;(10 MCG) FROM 27MAR07-17APR07;STOP DATE WAS UNKNOWN
     Route: 058
     Dates: start: 20070220
  3. DEMADEX [Concomitant]
     Indication: CARDIAC FAILURE CONGESTIVE
     Route: 048
  4. GLUCOPHAGE [Concomitant]
  5. ASPIRIN [Concomitant]
     Route: 048
  6. IMDUR [Concomitant]
     Route: 048
  7. K-DUR [Concomitant]
  8. LISINOPRIL [Concomitant]
     Indication: ESSENTIAL HYPERTENSION
  9. NORVASC [Concomitant]
  10. BYETTA [Concomitant]
  11. DOXAZOSIN MESYLATE [Concomitant]
     Indication: ESSENTIAL HYPERTENSION
     Dosage: 2 MG: 20FEB07-27MAR07, 3 MG: 27MAR07-UNK, 1 MG: UNK-20FEB07
     Route: 048
     Dates: start: 20070220, end: 20070327
  12. TRICOR [Concomitant]
     Indication: DYSLIPIDAEMIA
     Route: 048
     Dates: start: 200612
  13. LANTUS [Concomitant]
     Indication: TYPE 2 DIABETES MELLITUS
  14. HUMALOG [Concomitant]
  15. LIPITOR [Concomitant]
     Dates: start: 2006

REACTIONS (24)
  - Hepatic failure [Fatal]
  - Drug-induced liver injury [Unknown]
  - Renal failure acute [Not Recovered/Not Resolved]
  - Renal tubular necrosis [Unknown]
  - Urinary tract infection [Unknown]
  - Large intestine polyp [Recovered/Resolved]
  - Weight decreased [Unknown]
  - Clostridium difficile colitis [Unknown]
  - Escherichia infection [Unknown]
  - Dialysis [None]
  - Cholelithiasis [None]
  - Hepatotoxicity [None]
  - Urinary retention [None]
  - Staphylococcal infection [None]
  - Renal failure chronic [None]
  - Rash pruritic [None]
  - Bacteraemia [None]
  - Skin ulcer [None]
  - Ascites [None]
  - Depression [None]
  - Dyspnoea [None]
  - Asthenia [None]
  - Mobility decreased [None]
  - Medical device complication [None]
